FAERS Safety Report 6902784-7 (Version None)
Quarter: 2010Q3

REPORT INFORMATION
  Report Type: 
  Country: None (occurrence: None)
  Receive Date: 20100803
  Receipt Date: 20080715
  Transmission Date: 20110219
  Serious: Yes (Other)
  Sender: FDA-Public Use
  Company Number: US-PFIZER INC-2008060327

PATIENT
  Age: 40 Year

DRUGS (1)
  1. LYRICA [Suspect]

REACTIONS (1)
  - HALLUCINATION [None]
